FAERS Safety Report 6759171-4 (Version None)
Quarter: 2010Q2

REPORT INFORMATION
  Report Type: 
  Country: None (occurrence: None)
  Receive Date: 20100607
  Receipt Date: 20100528
  Transmission Date: 20101027
  Serious: Yes (Hospitalization)
  Sender: FDA-Public Use
  Company Number: BR-ABBOTT-09P-020-0605501-00

PATIENT
  Sex: Female
  Weight: 70 kg

DRUGS (12)
  1. HUMIRA [Suspect]
     Indication: RHEUMATOID ARTHRITIS
     Route: 058
     Dates: start: 20071001
  2. PRELONE [Concomitant]
     Indication: PAIN
     Dosage: 1 OR 1.5 PER DAY
     Route: 048
     Dates: start: 20070101
  3. ATACAND HCT [Concomitant]
     Indication: HYPERTENSION
     Dosage: 16MG/12.5MG 1 IN 24 HOURS
     Route: 048
  4. MARCUMAR [Concomitant]
     Indication: ANTICOAGULANT THERAPY
     Route: 048
  5. LANITOP [Concomitant]
     Indication: CARDIAC DISORDER
     Route: 048
  6. ROHYPNOL [Concomitant]
     Indication: SLEEP DISORDER THERAPY
     Route: 048
  7. AZOPT [Concomitant]
     Indication: GLAUCOMA
     Dosage: 2 DROPS PER DAY
     Route: 047
  8. ALPHAGAN [Concomitant]
     Indication: GLAUCOMA
     Dosage: DAILY
     Route: 047
  9. XALATAN [Concomitant]
     Indication: GLAUCOMA
     Route: 047
  10. LEFLUNOMIDE [Concomitant]
     Indication: RHEUMATOID ARTHRITIS
     Route: 048
  11. RISEDRONATE SODIUM [Concomitant]
     Indication: BONE DISORDER
     Route: 048
     Dates: start: 20070101
  12. EPIDRAT [Concomitant]
     Indication: DRY SKIN
     Dosage: MOISTURISER
     Route: 061
     Dates: start: 20070101

REACTIONS (9)
  - ABASIA [None]
  - APHAGIA [None]
  - ASTHENIA [None]
  - BLOOD CREATINE PHOSPHOKINASE ABNORMAL [None]
  - C-REACTIVE PROTEIN ABNORMAL [None]
  - EYELID DISORDER [None]
  - PAIN [None]
  - RHEUMATOID FACTOR NEGATIVE [None]
  - WEIGHT INCREASED [None]
